FAERS Safety Report 19727006 (Version 1)
Quarter: 2021Q3

REPORT INFORMATION
  Report Type: Spontaneous
  Country: US (occurrence: US)
  Receive Date: 20210819
  Receipt Date: 20210819
  Transmission Date: 20211014
  Serious: No
  Sender: FDA-Public Use
  Company Number: US-ARBOR PHARMACEUTICALS, LLC-US-2020ARB000551

PATIENT
  Sex: Male

DRUGS (2)
  1. TRIPTODUR [Suspect]
     Active Substance: TRIPTORELIN
     Indication: GENDER DYSPHORIA
     Dosage: 22.5 MG, SRER, ONCE DAILY
     Route: 030
  2. TRIPTODUR [Suspect]
     Active Substance: TRIPTORELIN
     Indication: GENDER DYSPHORIA
     Dosage: 22.5 MG, SINGLE, EVERY 24 WEEKS
     Route: 030

REACTIONS (1)
  - Off label use [Unknown]
